FAERS Safety Report 9055976 (Version 1)
Quarter: 2013Q1

REPORT INFORMATION
  Report Type: Spontaneous
  Country: BR (occurrence: BR)
  Receive Date: 20130205
  Receipt Date: 20130205
  Transmission Date: 20140127
  Serious: Yes (Other)
  Sender: FDA-Public Use
  Company Number: PHHY2013BR010279

PATIENT
  Age: 53 None
  Sex: Female

DRUGS (2)
  1. ACLASTA [Suspect]
     Indication: OSTEITIS DEFORMANS
     Dosage: UNK UKN, UNK
     Route: 042
     Dates: start: 20130123
  2. BONECAL D [Concomitant]
     Dosage: UNK, BID
     Route: 048

REACTIONS (10)
  - Eye disorder [Recovering/Resolving]
  - Conjunctivitis [Recovering/Resolving]
  - Ocular hyperaemia [Recovering/Resolving]
  - Sleep disorder [Recovering/Resolving]
  - Visual impairment [Recovering/Resolving]
  - Muscle spasms [Recovering/Resolving]
  - Pruritus [Recovering/Resolving]
  - Pyrexia [Recovering/Resolving]
  - Hypersensitivity [Recovering/Resolving]
  - Pain [Recovering/Resolving]
